FAERS Safety Report 23799370 (Version 3)
Quarter: 2024Q3

REPORT INFORMATION
  Report Type: Spontaneous
  Country: US (occurrence: US)
  Receive Date: 20240430
  Receipt Date: 20240930
  Transmission Date: 20241017
  Serious: Yes (Other)
  Sender: PFIZER
  Company Number: US-PFIZER INC-PV202400055765

PATIENT
  Age: 71 Year
  Sex: Female
  Weight: 97.506 kg

DRUGS (1)
  1. IBRANCE [Suspect]
     Active Substance: PALBOCICLIB
     Indication: Breast cancer metastatic
     Dosage: 100 MG, 1X/DAY AT 11 AM
     Dates: start: 202311

REACTIONS (2)
  - Leg amputation [Unknown]
  - Alopecia [Unknown]
